APPROVED DRUG PRODUCT: IPRATROPIUM BROMIDE
Active Ingredient: IPRATROPIUM BROMIDE
Strength: 0.021MG/SPRAY
Dosage Form/Route: SPRAY, METERED;NASAL
Application: A217912 | Product #001 | TE Code: AB
Applicant: LUPIN INC
Approved: Feb 7, 2025 | RLD: No | RS: No | Type: RX